FAERS Safety Report 7278302-3 (Version None)
Quarter: 2011Q1

REPORT INFORMATION
  Report Type: 
  Country: None (occurrence: None)
  Receive Date: 20110131
  Receipt Date: 20110119
  Transmission Date: 20110831
  Serious: Yes (Hospitalization)
  Sender: FDA-Public Use
  Company Number: OMPQ-NO-1010S-0888

PATIENT
  Age: 72 Year
  Sex: Male

DRUGS (6)
  1. ATARAX [Concomitant]
  2. TALION [Concomitant]
  3. LOXONIN [Concomitant]
  4. TERNELIN [Concomitant]
  5. PROTECADIN [Concomitant]
  6. OMNIPAQUE 70 [Suspect]
     Indication: IRRITABLE BOWEL SYNDROME
     Dosage: 100 ML, SINGLE DOSE, I.V.
     Route: 042
     Dates: start: 20100929, end: 20100929

REACTIONS (6)
  - PYELONEPHRITIS [None]
  - ABDOMINAL PAIN [None]
  - POLYMYALGIA RHEUMATICA [None]
  - NO THERAPEUTIC RESPONSE [None]
  - PAIN [None]
  - NECK PAIN [None]
